FAERS Safety Report 19407740 (Version 4)
Quarter: 2021Q3

REPORT INFORMATION
  Report Type: Report from Study
  Country: None (occurrence: FR)
  Receive Date: 20210612
  Receipt Date: 20210921
  Transmission Date: 20211014
  Serious: Yes (Hospitalization)
  Sender: FDA-Public Use
  Company Number: FR-ABBVIE-21P-056-3926390-00

PATIENT
  Age: 72 Year
  Sex: Male

DRUGS (11)
  1. AMIKACINE [Concomitant]
     Active Substance: AMIKACIN
     Indication: PROPHYLAXIS
     Route: 042
     Dates: start: 20210521, end: 20210521
  2. VENETOCLAX. [Suspect]
     Active Substance: VENETOCLAX
     Route: 048
     Dates: start: 20210510, end: 20210526
  3. FILGRASTIM [Concomitant]
     Active Substance: FILGRASTIM
     Indication: NEUTROPENIA
     Route: 058
     Dates: start: 20210617
  4. CALCIDOSE [Concomitant]
     Indication: PROPHYLAXIS
     Dosage: PACKETS
     Route: 048
     Dates: start: 20210414
  5. OMEPRAZOLE. [Concomitant]
     Active Substance: OMEPRAZOLE
     Route: 048
     Dates: start: 20210427, end: 20210627
  6. AZACITIDINE. [Concomitant]
     Active Substance: AZACITIDINE
     Indication: ACUTE MYELOID LEUKAEMIA
     Route: 058
     Dates: start: 20210309, end: 20210509
  7. OMEPRAZOLE. [Concomitant]
     Active Substance: OMEPRAZOLE
     Indication: PROPHYLAXIS
     Route: 048
     Dates: start: 20210420, end: 20210426
  8. VENETOCLAX. [Suspect]
     Active Substance: VENETOCLAX
     Indication: ACUTE MYELOID LEUKAEMIA
     Route: 048
     Dates: start: 20210309, end: 20210309
  9. AZACITIDINE. [Concomitant]
     Active Substance: AZACITIDINE
     Route: 058
     Dates: start: 20210510, end: 20210516
  10. CC?90009 [Concomitant]
     Active Substance: INVESTIGATIONAL PRODUCT
     Indication: ACUTE MYELOID LEUKAEMIA
     Route: 042
     Dates: start: 20210312, end: 20210514
  11. MAGNESIUM SULFATE. [Concomitant]
     Active Substance: MAGNESIUM SULFATE
     Indication: PROPHYLAXIS
     Dosage: AMPULE
     Route: 042
     Dates: start: 20210610

REACTIONS (1)
  - Pulmonary mucormycosis [Recovered/Resolved]

NARRATIVE: CASE EVENT DATE: 20210522
